FAERS Safety Report 9279507 (Version 1)
Quarter: 2013Q2

REPORT INFORMATION
  Report Type: Spontaneous
  Country: TR (occurrence: TR)
  Receive Date: 20130508
  Receipt Date: 20130508
  Transmission Date: 20140414
  Serious: Yes (Other)
  Sender: FDA-Public Use
  Company Number: TR-BRISTOL-MYERS SQUIBB COMPANY-18845651

PATIENT
  Age: 53 Year
  Sex: Male

DRUGS (2)
  1. COUMADIN TABS 5 MG [Suspect]
     Indication: STENT PLACEMENT
     Route: 048
     Dates: start: 1994
  2. DISULFIRAM [Interacting]
     Indication: ALCOHOLISM
     Route: 048
     Dates: start: 20130320, end: 20130327

REACTIONS (6)
  - Dyspnoea [Unknown]
  - Choking sensation [Unknown]
  - Palpitations [Unknown]
  - Hypoglycaemia [Unknown]
  - Fear of death [Unknown]
  - Drug interaction [Unknown]
